FAERS Safety Report 18518496 (Version 4)
Quarter: 2021Q1

REPORT INFORMATION
  Report Type: Spontaneous
  Country: US (occurrence: US)
  Receive Date: 20201118
  Receipt Date: 20210319
  Transmission Date: 20210419
  Serious: No
  Sender: FDA-Public Use
  Company Number: US-BIOGEN-2020BI00946240

PATIENT
  Sex: Female

DRUGS (3)
  1. TECFIDERA [Suspect]
     Active Substance: DIMETHYL FUMARATE
     Route: 065
  2. TECFIDERA [Suspect]
     Active Substance: DIMETHYL FUMARATE
     Dosage: TOOK TEC 120MG/BID FOR 2WKS BEFORE TITRATING TO MAINTENANCE DOSE 240MG/BID.
     Route: 065
     Dates: start: 202009
  3. TECFIDERA [Suspect]
     Active Substance: DIMETHYL FUMARATE
     Indication: MULTIPLE SCLEROSIS
     Route: 065
     Dates: start: 20201008

REACTIONS (3)
  - Flushing [Unknown]
  - Multiple sclerosis [Recovered/Resolved]
  - Pruritus [Unknown]
